FAERS Safety Report 24410184 (Version 1)
Quarter: 2024Q4

REPORT INFORMATION
  Report Type: Spontaneous
  Country: US (occurrence: US)
  Receive Date: 20241008
  Receipt Date: 20241008
  Transmission Date: 20250115
  Serious: No
  Sender: ALEXION PHARMACEUTICALS
  Company Number: US-AstraZeneca-CH-00718540A

PATIENT
  Age: 36 Year
  Weight: 94.8 kg

DRUGS (6)
  1. BREZTRI [Suspect]
     Active Substance: BUDESONIDE\FORMOTEROL\GLYCOPYRROLATE
  2. BREZTRI [Suspect]
     Active Substance: BUDESONIDE\FORMOTEROL\GLYCOPYRROLATE
  3. TESSALON [Suspect]
     Active Substance: BENZONATATE
     Route: 050
  4. TESSALON [Suspect]
     Active Substance: BENZONATATE
  5. TESSALON [Suspect]
     Active Substance: BENZONATATE
     Route: 050
  6. TESSALON [Suspect]
     Active Substance: BENZONATATE

REACTIONS (1)
  - Hypoaesthesia [Unknown]
